FAERS Safety Report 7623984-7 (Version None)
Quarter: 2011Q3

REPORT INFORMATION
  Report Type: 
  Country: None (occurrence: None)
  Receive Date: 20110720
  Receipt Date: 20110609
  Transmission Date: 20111222
  Serious: No
  Sender: FDA-Public Use
  Company Number: US-BRISTOL-MYERS SQUIBB COMPANY-15818446

PATIENT
  Sex: Male

DRUGS (1)
  1. YERVOY [Suspect]
     Indication: MALIGNANT MELANOMA
     Dosage: NO OF INFUSION: 2(TOTAL) FIRST INFUSION ON 08JUN2011
     Route: 042
     Dates: start: 20110608

REACTIONS (2)
  - NAIL DISCOLOURATION [None]
  - DIZZINESS [None]
